FAERS Safety Report 4373755-2 (Version None)
Quarter: 2004Q2

REPORT INFORMATION
  Report Type: 
  Country: None (occurrence: None)
  Receive Date: 20040607
  Receipt Date: 20040607
  Transmission Date: 20050107
  Serious: Yes (Hospitalization)
  Sender: FDA-Public Use
  Company Number: None

PATIENT
  Age: 70 Year
  Sex: Male
  Weight: 119 kg

DRUGS (2)
  1. PRIMAXIN [Suspect]
     Indication: INFECTION
     Dosage: 1 GM Q6 H IV
     Route: 042
     Dates: start: 20040512, end: 20040601
  2. PRIMAXIN [Suspect]
     Indication: PSEUDOCYST
     Dosage: 1 GM Q6 H IV
     Route: 042
     Dates: start: 20040512, end: 20040601

REACTIONS (2)
  - CONVULSION [None]
  - FACIAL SPASM [None]
